FAERS Safety Report 9471323 (Version 3)
Quarter: 2013Q3

REPORT INFORMATION
  Report Type: Report from Study
  Country: US (occurrence: US)
  Receive Date: 20130822
  Receipt Date: 20130912
  Transmission Date: 20140515
  Serious: Yes (Other)
  Sender: FDA-Public Use
  Company Number: US-ALEXION-A201301899

PATIENT
  Sex: Female
  Weight: 58.96 kg

DRUGS (4)
  1. SOLIRIS [Suspect]
     Indication: PAROXYSMAL NOCTURNAL HAEMOGLOBINURIA
     Dosage: 900 MG, Q2W
     Route: 042
     Dates: start: 201202
  2. CYCLOSPORINE [Concomitant]
     Dosage: 50 MG, BID
  3. MAGNESIUM OXIDE [Concomitant]
     Dosage: 250 MG, TID
  4. ADVAIR [Concomitant]
     Dosage: UNK, 250/50

REACTIONS (4)
  - Haemoglobin decreased [Unknown]
  - Dyspnoea [Not Recovered/Not Resolved]
  - Platelet count abnormal [Unknown]
  - Arthralgia [Not Recovered/Not Resolved]
